FAERS Safety Report 9792920 (Version 1)
Quarter: 2014Q1

REPORT INFORMATION
  Report Type: Spontaneous
  Country: US (occurrence: US)
  Receive Date: 20140102
  Receipt Date: 20140102
  Transmission Date: 20141002
  Serious: Yes (Hospitalization)
  Sender: FDA-Public Use
  Company Number: US-SANOFI-AVENTIS-2013SA053405

PATIENT
  Sex: Female

DRUGS (1)
  1. AUBAGIO [Suspect]
     Indication: MULTIPLE SCLEROSIS
     Route: 048
     Dates: start: 20130424

REACTIONS (10)
  - Multiple sclerosis relapse [Unknown]
  - Hypoaesthesia [Unknown]
  - Headache [Unknown]
  - Musculoskeletal stiffness [Unknown]
  - Speech disorder [Unknown]
  - Coordination abnormal [Unknown]
  - Fatigue [Unknown]
  - Increased appetite [Unknown]
  - Weight increased [Unknown]
  - Alopecia [Unknown]
